FAERS Safety Report 21206884 (Version 1)
Quarter: 2022Q3

REPORT INFORMATION
  Report Type: Spontaneous
  Country: PT (occurrence: PT)
  Receive Date: 20220812
  Receipt Date: 20220812
  Transmission Date: 20221026
  Serious: Yes (Other)
  Sender: FDA-Public Use
  Company Number: PT-RECORDATI-2022003654

PATIENT
  Age: 65 Year
  Sex: Male

DRUGS (4)
  1. ABIRATERONE ACETATE [Suspect]
     Active Substance: ABIRATERONE ACETATE
     Indication: Hormone-refractory prostate cancer
     Dosage: 1 GRAM, QD
     Route: 048
  2. BICALUTAMIDE [Suspect]
     Active Substance: BICALUTAMIDE
     Indication: Hormone-refractory prostate cancer
     Dosage: 50 MILLIGRAM, QD
     Route: 065
  3. ELIGARD [Suspect]
     Active Substance: LEUPROLIDE ACETATE
     Indication: Hormone-refractory prostate cancer
     Dosage: 22.5 MILLIGRAM, Q 3 MONTH
     Route: 065
  4. PREDNISOLONE [Suspect]
     Active Substance: PREDNISOLONE
     Indication: Hormone-refractory prostate cancer
     Dosage: 10 MILLIGRAM, QD
     Route: 065

REACTIONS (4)
  - Dysphagia [Unknown]
  - Paraneoplastic dermatomyositis [Unknown]
  - Disease recurrence [Unknown]
  - Prostatic specific antigen increased [Unknown]
